FAERS Safety Report 12203121 (Version 1)
Quarter: 2016Q1

REPORT INFORMATION
  Report Type: Spontaneous
  Country: GB (occurrence: None)
  Receive Date: 20160321
  Receipt Date: 20160321
  Transmission Date: 20160526
  Serious: No
  Sender: FDA-Public Use
  Company Number: GB2016K1170SPO

PATIENT
  Sex: Male

DRUGS (2)
  1. LANSOPRAZOLE WORLD (LANSOPRAZOLE) UNKNOWN [LOT # UNKNOWN} [Suspect]
     Active Substance: LANSOPRAZOLE
     Indication: PERFORATED ULCER
  2. DIAZEPAM. [Concomitant]
     Active Substance: DIAZEPAM

REACTIONS (2)
  - Hallucination [None]
  - Agoraphobia [None]
